FAERS Safety Report 7001437-7 (Version None)
Quarter: 2010Q3

REPORT INFORMATION
  Report Type: 
  Country: None (occurrence: None)
  Receive Date: 20100920
  Receipt Date: 20100219
  Transmission Date: 20110219
  Serious: No
  Sender: FDA-Public Use
  Company Number: US-ASTRAZENECA-2010SE07428

PATIENT
  Age: 95 Year
  Sex: Female
  Weight: 61.2 kg

DRUGS (1)
  1. SEROQUEL XR [Suspect]
     Indication: AGITATION
     Route: 048
     Dates: start: 20080101

REACTIONS (3)
  - DEMENTIA [None]
  - DYSPHAGIA [None]
  - WRONG TECHNIQUE IN DRUG USAGE PROCESS [None]
